FAERS Safety Report 24527102 (Version 1)
Quarter: 2024Q4

REPORT INFORMATION
  Report Type: Report from Study
  Country: DE (occurrence: DE)
  Receive Date: 20241021
  Receipt Date: 20241021
  Transmission Date: 20250115
  Serious: Yes (Death, Other)
  Sender: UCB
  Company Number: DE-UCBSA-2024052651

PATIENT
  Age: 76 Year
  Sex: Male

DRUGS (3)
  1. CERTOLIZUMAB PEGOL [Suspect]
     Active Substance: CERTOLIZUMAB PEGOL
     Indication: Product used for unknown indication
     Dosage: 200 MILLIGRAM
     Dates: start: 201403
  2. METHOTREXATE [Concomitant]
     Active Substance: METHOTREXATE
     Indication: Product used for unknown indication
     Dosage: 25
     Dates: start: 201403
  3. METHOTREXATE [Concomitant]
     Active Substance: METHOTREXATE
     Dosage: 15

REACTIONS (2)
  - Arrhythmia [Fatal]
  - Pulmonary haemorrhage [Fatal]

NARRATIVE: CASE EVENT DATE: 20220731
